FAERS Safety Report 15023551 (Version 1)
Quarter: 2018Q2

REPORT INFORMATION
  Report Type: Spontaneous
  Country: US (occurrence: US)
  Receive Date: 20180618
  Receipt Date: 20180618
  Transmission Date: 20180711
  Serious: No
  Sender: FDA-Public Use
  Company Number: US-BAYER-2018-113728

PATIENT

DRUGS (1)
  1. DROSPIRENONE+ETHINYLESTRADIOL+L-5-METHYLTETRAHYDROFOLIC ACID-CA SA [Suspect]
     Active Substance: DROSPIRENONE\ETHINYL ESTRADIOL\LEVOMEFOLATE CALCIUM
     Route: 048

REACTIONS (4)
  - Malaise [None]
  - Withdrawal syndrome [None]
  - Anger [None]
  - Confusional state [None]
